FAERS Safety Report 9419986 (Version 2)
Quarter: 2013Q3

REPORT INFORMATION
  Report Type: Spontaneous
  Country: CA (occurrence: CA)
  Receive Date: 20130725
  Receipt Date: 20130805
  Transmission Date: 20140515
  Serious: Yes (Hospitalization)
  Sender: FDA-Public Use
  Company Number: CA-JNJFOC-20130710703

PATIENT
  Sex: 0

DRUGS (6)
  1. DOXORUBICIN [Suspect]
     Indication: PLASMA CELL MYELOMA
     Dosage: ADMINISTERED EVERY 4 TO 6 WEEKS
     Route: 042
  2. DEXAMETHASONE [Suspect]
     Indication: PLASMA CELL MYELOMA
     Dosage: FOR FOUR DAYS; ADMINISTERED EVERY 4 TO 6 WEEKS
     Route: 048
     Dates: start: 199901
  3. CISPLATIN [Suspect]
     Indication: PLASMA CELL MYELOMA
     Dosage: 4 DAYS CONTINUOUS INFUSION; ADMINISTERED EVERY 4 TO 6 WEEKS
     Route: 042
     Dates: start: 199901
  4. CYCLOPHOSPHAMIDE [Suspect]
     Indication: PLASMA CELL MYELOMA
     Dosage: ADMINISTERED EVERY 4 TO 6 WEEKS
     Route: 042
     Dates: start: 199901
  5. ETOPOSIDE [Suspect]
     Indication: PLASMA CELL MYELOMA
     Dosage: ADMINISTERED EVERY 4 TO 6 WEEKS
     Route: 042
     Dates: start: 199901
  6. THALIDOMIDE [Suspect]
     Indication: PLASMA CELL MYELOMA
     Dosage: 50 TO 100 MG
     Route: 048
     Dates: start: 199901

REACTIONS (1)
  - Activities of daily living impaired [Unknown]
